FAERS Safety Report 14129078 (Version 1)
Quarter: 2017Q4

REPORT INFORMATION
  Report Type: Spontaneous
  Country: FR (occurrence: FR)
  Receive Date: 20171026
  Receipt Date: 20171026
  Transmission Date: 20180321
  Serious: Yes (Other)
  Sender: FDA-Public Use
  Company Number: FR-PFIZER INC-2017456148

PATIENT
  Age: 27 Year
  Sex: Female

DRUGS (1)
  1. CYTOTEC [Suspect]
     Active Substance: MISOPROSTOL
     Dosage: 2 TABLETS AT 8 A.M IN THE MORNING AND 2 TABLETS AT 2 P.M THE SAME DAY
     Dates: start: 201710

REACTIONS (6)
  - Vaginal haemorrhage [Unknown]
  - Anaemia [Unknown]
  - Seizure [Unknown]
  - Syncope [Unknown]
  - Loss of consciousness [Unknown]
  - Blood pressure decreased [Unknown]

NARRATIVE: CASE EVENT DATE: 201710
